FAERS Safety Report 7595818-0 (Version None)
Quarter: 2011Q3

REPORT INFORMATION
  Report Type: 
  Country: None (occurrence: None)
  Receive Date: 20110707
  Receipt Date: 20110705
  Transmission Date: 20111222
  Serious: Yes (Other)
  Sender: FDA-Public Use
  Company Number: US-PFIZER INC-2011151710

PATIENT
  Sex: Female
  Weight: 91.156 kg

DRUGS (3)
  1. CHANTIX [Suspect]
     Dosage: 0.5 MG, DAILY
     Route: 048
     Dates: start: 20110604, end: 20110601
  2. CHANTIX [Suspect]
     Dosage: 1MG, 2X/DAY
     Route: 048
     Dates: start: 20110601
  3. CHANTIX [Suspect]
     Indication: SMOKING CESSATION THERAPY
     Route: 048

REACTIONS (6)
  - DEPRESSION [None]
  - CRYING [None]
  - ANXIETY [None]
  - ANGER [None]
  - DYSPEPSIA [None]
  - ABNORMAL DREAMS [None]
